FAERS Safety Report 9862992 (Version 1)
Quarter: 2014Q1

REPORT INFORMATION
  Report Type: Spontaneous
  Country: US (occurrence: US)
  Receive Date: 20140203
  Receipt Date: 20140203
  Transmission Date: 20141002
  Serious: Yes (Death, Hospitalization, Other)
  Sender: FDA-Public Use
  Company Number: PHHY2014US007938

PATIENT
  Age: 53 Year
  Sex: Female

DRUGS (4)
  1. BUPROPION [Suspect]
     Dosage: 20-30 DF, UNK
  2. VENLAFAXINE [Suspect]
  3. PROPOFOL [Suspect]
     Indication: STATUS EPILEPTICUS
     Route: 041
  4. ALCOHOL [Suspect]

REACTIONS (12)
  - Toxicity to various agents [Fatal]
  - Completed suicide [Fatal]
  - General physical health deterioration [Unknown]
  - Unresponsive to stimuli [Unknown]
  - Hypotension [Unknown]
  - Status epilepticus [Unknown]
  - Nausea [Unknown]
  - Hypoxic-ischaemic encephalopathy [Unknown]
  - Encephalomalacia [Unknown]
  - Pulmonary oedema [Unknown]
  - Ascites [Unknown]
  - Pleural effusion [Unknown]
